FAERS Safety Report 25989231 (Version 1)
Quarter: 2025Q4

REPORT INFORMATION
  Report Type: Spontaneous
  Country: US (occurrence: US)
  Receive Date: 20251103
  Receipt Date: 20251103
  Transmission Date: 20260118
  Serious: Yes (Other)
  Sender: NOVARTIS
  Company Number: US-002147023-NVSC2025US168804

PATIENT

DRUGS (1)
  1. RHAPSIDO [Suspect]
     Active Substance: REMIBRUTINIB
     Indication: Mast cell activation syndrome
     Dosage: UNK
     Route: 048

REACTIONS (6)
  - Immunosuppression [Unknown]
  - Haemorrhage [Unknown]
  - Aphthous ulcer [Unknown]
  - Nasal disorder [Unknown]
  - Skin papilloma [Unknown]
  - Off label use [Unknown]
